FAERS Safety Report 4670776-7 (Version None)
Quarter: 2005Q2

REPORT INFORMATION
  Report Type: 
  Country: None (occurrence: None)
  Receive Date: 20050523
  Receipt Date: 20050509
  Transmission Date: 20051028
  Serious: Yes (Other)
  Sender: FDA-Public Use
  Company Number: 2005073154

PATIENT
  Age: 32 Year
  Sex: Male

DRUGS (3)
  1. CLINDAMYCIN PHOSPHATE [Suspect]
     Indication: LUNG ABSCESS
     Dosage: (1800 MG, UNKNOWN), INTRAVENOUS
     Route: 042
     Dates: start: 20050325, end: 20050328
  2. CLARITHROMYCIN [Concomitant]
  3. TAZOCIN (PIPERACILLIN SODIUM, TAZOBACTAM SODIUM) [Concomitant]

REACTIONS (7)
  - GRANULOCYTOPENIA [None]
  - HAEMOLYTIC ANAEMIA [None]
  - LYMPHOPENIA [None]
  - PRURITUS [None]
  - PURPURA [None]
  - PYREXIA [None]
  - THROMBOCYTOPENIA [None]
